FAERS Safety Report 9682422 (Version 2)
Quarter: 2014Q2

REPORT INFORMATION
  Report Type: Report from Study
  Country: JP (occurrence: JP)
  Receive Date: 20131112
  Receipt Date: 20140403
  Transmission Date: 20141212
  Serious: Yes (Hospitalization)
  Sender: FDA-Public Use
  Company Number: JP-AMGEN-JPNCT2013078674

PATIENT
  Age: 75 Year
  Sex: Female
  Weight: 66 kg

DRUGS (10)
  1. DARBEPOETIN ALFA [Suspect]
     Indication: NEPHROGENIC ANAEMIA
     Dosage: 40 MUG, Q4WK
     Route: 058
     Dates: start: 20110302
  2. OLMETEC [Concomitant]
     Dosage: UNK
     Route: 048
  3. BEZATATE [Concomitant]
     Dosage: UNK
     Route: 048
  4. NARCARICIN [Concomitant]
     Dosage: UNK
     Route: 048
  5. MENATETRENONE [Concomitant]
     Dosage: UNK
     Route: 048
  6. LASOPRAN [Concomitant]
     Dosage: UNK
     Route: 048
  7. PODONIN S [Concomitant]
     Dosage: UNK
     Route: 048
  8. FUROSEMIDE [Concomitant]
     Dosage: UNK
     Route: 048
  9. FEBURIC [Concomitant]
     Dosage: UNK
     Route: 048
  10. AMLODIPINE [Concomitant]
     Dosage: UNK
     Route: 048

REACTIONS (5)
  - Gastric ulcer [Recovering/Resolving]
  - Gastrointestinal haemorrhage [Recovered/Resolved]
  - Lumbar vertebral fracture [Recovered/Resolved]
  - Anaemia macrocytic [Recovering/Resolving]
  - Urticaria [Recovered/Resolved]
